FAERS Safety Report 10663928 (Version 1)
Quarter: 2014Q4

REPORT INFORMATION
  Report Type: Spontaneous
  Country: US (occurrence: None)
  Receive Date: 20141218
  Receipt Date: 20141218
  Transmission Date: 20150529
  Serious: Yes (Hospitalization, Disabling, Other)
  Sender: FDA-Public Use
  Company Number: None

PATIENT
  Age: 13 Year
  Sex: Male
  Weight: 59.88 kg

DRUGS (5)
  1. METHOTREXATE [Suspect]
     Active Substance: METHOTREXATE
     Dosage: 5 PILLS PER WEEK, 1 PER DAY
     Dates: start: 2011, end: 201305
  2. GUAFOCINE [Concomitant]
  3. HUMIRA [Suspect]
     Active Substance: ADALIMUMAB
     Indication: SPONDYLOARTHROPATHY
     Dosage: .4 HUMIRA INJECTION EVERY TWO WEEKS ?HUMIRA INJECTION
     Dates: start: 2012, end: 201305
  4. HUMIRA [Suspect]
     Active Substance: ADALIMUMAB
     Indication: NEUROPATHY PERIPHERAL
     Dosage: .4 HUMIRA INJECTION EVERY TWO WEEKS ?HUMIRA INJECTION
     Dates: start: 2012, end: 201305
  5. HYDROCORTIZONE LOTION [Concomitant]

REACTIONS (2)
  - Aggression [None]
  - Catatonia [None]

NARRATIVE: CASE EVENT DATE: 201108
